FAERS Safety Report 12074271 (Version 2)
Quarter: 2016Q2

REPORT INFORMATION
  Report Type: Report from Study
  Country: US (occurrence: US)
  Receive Date: 20160212
  Receipt Date: 20160623
  Transmission Date: 20160815
  Serious: Yes (Other)
  Sender: FDA-Public Use
  Company Number: US-AUROBINDO-AUR-APL-2016-01240

PATIENT
  Age: 56 Year
  Sex: Female

DRUGS (4)
  1. RIBAVIRIN 200MG [Suspect]
     Active Substance: RIBAVIRIN
     Dosage: 200 MG, ONCE A DAY
  2. SOFOSBUVIR [Suspect]
     Active Substance: SOFOSBUVIR
     Indication: HEPATITIS C
     Dosage: 400 MG, UNK
     Route: 065
  3. RIBAVIRIN 200MG [Suspect]
     Active Substance: RIBAVIRIN
     Indication: HEPATITIS C
     Dosage: 200 MG, TWO TIMES A DAY
     Route: 065
  4. PEGYLATED INTERFERON ALPHA NOS [Suspect]
     Active Substance: PEGINTERFERON ALFA-2A OR PEGINTERFERON ALFA-2B
     Indication: HEPATITIS C
     Route: 065

REACTIONS (5)
  - Anaemia [Unknown]
  - Tubulointerstitial nephritis [Recovered/Resolved]
  - Lupus-like syndrome [Recovered/Resolved]
  - Acute kidney injury [Recovered/Resolved]
  - Glomerulonephritis [Recovering/Resolving]
